FAERS Safety Report 8640219 (Version 2)
Quarter: 2013Q2

REPORT INFORMATION
  Report Type: Report from Study
  Country: US (occurrence: US)
  Receive Date: 20120628
  Receipt Date: 20130627
  Transmission Date: 20140414
  Serious: Yes (Other)
  Sender: FDA-Public Use
  Company Number: US-MYLANLABS-2012S1001548

PATIENT
  Age: 56 Year
  Sex: Male

DRUGS (9)
  1. CLOZAPINE TABLETS [Suspect]
     Route: 048
     Dates: end: 20120118
  2. CLOZAPINE TABLETS [Suspect]
     Route: 048
     Dates: start: 20120121, end: 201205
  3. CLOZAPINE TABLETS [Suspect]
     Route: 048
  4. VITAMIN D [Concomitant]
  5. SIMVASTATIN [Concomitant]
     Route: 048
  6. TRILEPTAL [Concomitant]
     Route: 048
  7. LEVOTHYROXINE [Concomitant]
     Route: 048
  8. LACTULOSE [Concomitant]
     Route: 048
  9. COLACE [Concomitant]

REACTIONS (2)
  - Granulocytopenia [Not Recovered/Not Resolved]
  - Leukopenia [Recovered/Resolved]
